FAERS Safety Report 10667117 (Version 1)
Quarter: 2014Q4

REPORT INFORMATION
  Report Type: Spontaneous
  Country: US (occurrence: None)
  Receive Date: 20141218
  Receipt Date: 20141218
  Transmission Date: 20150529
  Serious: Yes (Other)
  Sender: FDA-Public Use
  Company Number: 2014SA172750

PATIENT
  Age: 49 Year
  Sex: Male

DRUGS (1)
  1. ACT TOTAL CARE ANTICAVITY FLUORIDE FRESH MINT [Suspect]
     Active Substance: SODIUM FLUORIDE
     Indication: DENTAL CARE

REACTIONS (1)
  - Paralysis [None]
